FAERS Safety Report 6794664-5 (Version None)
Quarter: 2010Q2

REPORT INFORMATION
  Report Type: 
  Country: None (occurrence: None)
  Receive Date: 20100625
  Receipt Date: 20100617
  Transmission Date: 20101027
  Serious: Yes (Hospitalization, Other)
  Sender: FDA-Public Use
  Company Number: US-ASTRAZENECA-2010SE29312

PATIENT
  Age: 49 Year
  Sex: Female

DRUGS (9)
  1. SEROQUEL [Suspect]
     Indication: AFFECTIVE DISORDER
     Route: 048
     Dates: start: 20030901
  2. SEROQUEL [Suspect]
     Indication: SLEEP DISORDER
     Route: 048
     Dates: start: 20030901
  3. HYDROCODONE [Concomitant]
     Dosage: 10-650 MG
  4. AMBIEN [Concomitant]
     Dates: start: 20051006
  5. LUNESTA [Concomitant]
     Indication: INSOMNIA
  6. PROTONIX [Concomitant]
     Dates: start: 20051006
  7. CARDIZEM [Concomitant]
     Dates: start: 20051006
  8. ROXICET [Concomitant]
  9. LORAZEPAM [Concomitant]

REACTIONS (12)
  - BACK PAIN [None]
  - BIPOLAR DISORDER [None]
  - BLOOD PRESSURE INCREASED [None]
  - BORDERLINE PERSONALITY DISORDER [None]
  - CONVULSION [None]
  - DIABETES MELLITUS [None]
  - FIBROMYALGIA [None]
  - MIGRAINE [None]
  - OBESITY [None]
  - OSTEONECROSIS [None]
  - SOMATISATION DISORDER [None]
  - SUICIDAL BEHAVIOUR [None]
